FAERS Safety Report 11076277 (Version 1)
Quarter: 2015Q2

REPORT INFORMATION
  Report Type: Report from Study
  Country: NL (occurrence: NL)
  Receive Date: 20150429
  Receipt Date: 20150429
  Transmission Date: 20150821
  Serious: Yes (Hospitalization)
  Sender: FDA-Public Use
  Company Number: NL-TAKEDA-2015MPI002189

PATIENT

DRUGS (2)
  1. VELCADE [Suspect]
     Active Substance: BORTEZOMIB
     Indication: AMYLOIDOSIS
     Dosage: 2 MG, UNK
     Route: 058
     Dates: start: 20141201
  2. MELPHALAN [Suspect]
     Active Substance: MELPHALAN
     Indication: AMYLOIDOSIS
     Dosage: 160 MG, UNK
     Route: 042
     Dates: start: 20150210, end: 20150211

REACTIONS (1)
  - Colitis [Recovered/Resolved]

NARRATIVE: CASE EVENT DATE: 20150309
